FAERS Safety Report 8949748 (Version 2)
Quarter: 2012Q4

REPORT INFORMATION
  Report Type: Report from Study
  Country: DE (occurrence: DE)
  Receive Date: 20121206
  Receipt Date: 20121219
  Transmission Date: 20130627
  Serious: Yes (Hospitalization)
  Sender: FDA-Public Use
  Company Number: DE-ROCHE-1163943

PATIENT
  Age: 60 Year
  Sex: Female
  Weight: 88 kg

DRUGS (5)
  1. CAPECITABINE [Suspect]
     Indication: RECTAL CANCER
     Dosage: Last dose of 2000 mg (single dose) prior to SAE on 15/Jul/2011
     Route: 048
     Dates: start: 20110607
  2. CAPECITABINE [Suspect]
     Route: 048
  3. OXALIPLATIN [Suspect]
     Indication: RECTAL CANCER
     Dosage: Date of last dose prior to SAE: 06/Jul/2011
     Route: 042
     Dates: start: 20110607
  4. OXALIPLATIN [Suspect]
     Route: 042
  5. L-THYROXINE [Concomitant]
     Indication: HYPOTHYROIDISM
     Route: 048
     Dates: start: 1980

REACTIONS (1)
  - Procedural site reaction [Recovered/Resolved]
